FAERS Safety Report 6717141-6 (Version None)
Quarter: 2010Q2

REPORT INFORMATION
  Report Type: 
  Country: None (occurrence: None)
  Receive Date: 20100505
  Receipt Date: 20100426
  Transmission Date: 20101027
  Serious: Yes (Life-Threatening, Other)
  Sender: FDA-Public Use
  Company Number: 008669

PATIENT
  Sex: Female

DRUGS (3)
  1. KEPPRA [Suspect]
     Indication: EPILEPSY
     Dosage: (500 MG BID INTRAVENOUS)
     Route: 042
     Dates: start: 20100304, end: 20100308
  2. ACYCLOVIR [Suspect]
     Indication: MENINGOENCEPHALITIS HERPETIC
     Dosage: (750 MG BID INTRAVENOUS)
     Route: 042
     Dates: start: 20100304, end: 20100309
  3. CEFTRIAXONE [Concomitant]

REACTIONS (1)
  - PANCYTOPENIA [None]
